FAERS Safety Report 10620944 (Version 1)
Quarter: 2014Q4

REPORT INFORMATION
  Report Type: Spontaneous
  Country: SE (occurrence: SE)
  Receive Date: 20141202
  Receipt Date: 20141202
  Transmission Date: 20150529
  Serious: Yes (Other)
  Sender: FDA-Public Use
  Company Number: SE-RANBAXY-2014RR-89515

PATIENT
  Sex: Female

DRUGS (1)
  1. SERTRALINE [Suspect]
     Active Substance: SERTRALINE HYDROCHLORIDE
     Indication: PRODUCT USED FOR UNKNOWN INDICATION
     Dosage: UNK
     Route: 065

REACTIONS (11)
  - Palpitations [Unknown]
  - Syncope [Unknown]
  - Dysphemia [Unknown]
  - Anxiety [Unknown]
  - Blepharospasm [Unknown]
  - Nausea [Unknown]
  - Seizure [Unknown]
  - Head discomfort [Unknown]
  - Abdominal pain [Unknown]
  - Dizziness [Unknown]
  - Derealisation [Unknown]
